FAERS Safety Report 8861353 (Version 3)
Quarter: 2012Q4

REPORT INFORMATION
  Report Type: 
  Country: US (occurrence: US)
  Receive Date: 20121026
  Receipt Date: 20121115
  Transmission Date: 20130627
  Serious: Yes (Other)
  Sender: FDA-Public Use
  Company Number: US-009507513-1210USA009916

PATIENT
  Age: 54 None
  Sex: Male

DRUGS (3)
  1. INTRONA [Suspect]
     Indication: MULTIPLE MYELOMA
     Dosage: 47.2 million IU, Monday to Friday
     Route: 042
     Dates: start: 20120417, end: 20120513
  2. INTRONA [Suspect]
     Dosage: 3 times a week
     Route: 058
     Dates: start: 20120514, end: 20121008
  3. INTRONA [Suspect]
     Dosage: UNK
     Dates: start: 20121029, end: 20121105

REACTIONS (6)
  - Osteonecrosis of jaw [Unknown]
  - Mouth ulceration [Unknown]
  - Oral pain [Unknown]
  - Bone disorder [Unknown]
  - Dental operation [Unknown]
  - Gingival pain [Unknown]
